FAERS Safety Report 20215886 (Version 1)
Quarter: 2021Q4

REPORT INFORMATION
  Report Type: Report from Study
  Country: CA (occurrence: CA)
  Receive Date: 20211222
  Receipt Date: 20211222
  Transmission Date: 20220304
  Serious: Yes (Other)
  Sender: FDA-Public Use
  Company Number: CA-BIOGEN-2021BI01079376

PATIENT
  Sex: Female

DRUGS (1)
  1. TYSABRI [Suspect]
     Active Substance: NATALIZUMAB
     Indication: Relapsing-remitting multiple sclerosis
     Dosage: INFUSED FOR 1 HOUR
     Route: 042
     Dates: start: 20210804

REACTIONS (3)
  - Crohn^s disease [Unknown]
  - Balance disorder [Unknown]
  - Menstrual disorder [Unknown]
